FAERS Safety Report 10745149 (Version 1)
Quarter: 2015Q1

REPORT INFORMATION
  Report Type: Spontaneous
  Country: US (occurrence: None)
  Receive Date: 20150126
  Receipt Date: 20150126
  Transmission Date: 20150721
  Serious: Yes (Hospitalization)
  Sender: FDA-Public Use
  Company Number: None

PATIENT
  Age: 69 Year
  Sex: Male
  Weight: 88 kg

DRUGS (19)
  1. BLOOD GLUCOSE MONITORING  SUPPL (ONE TOUCH ULTRA SMART) W/DEVICE KIT [Concomitant]
  2. FERROUS SULFATE [Concomitant]
     Active Substance: FERROUS SULFATE\FERROUS SULFATE, DRIED
  3. WARFARIN (COUMADIN) [Concomitant]
  4. IBRUTINIB [Suspect]
     Active Substance: IBRUTINIB
     Indication: CHRONIC LYMPHOCYTIC LEUKAEMIA
     Route: 048
     Dates: start: 20140604, end: 20140819
  5. ONDANSETRON (ZOFRAN) [Concomitant]
  6. ALLOPURINOL (ZYLOPRIM) [Concomitant]
  7. COENZYME [Concomitant]
  8. DIGOXIN (LANOXIN) [Concomitant]
  9. BLOOD GLUCOSE CALIBRATION (OT ULTRA FASTTK CNTRL SOLN) SOLN [Concomitant]
  10. HYDROXYZINE HCL (ATARAX) [Concomitant]
  11. IBRUTINIB (IMBRUVICA) [Concomitant]
  12. DIPHENOXYLATE-ATROPINE (LOMOTIL) [Concomitant]
  13. VERAPAMIL CR (ISOPTIN-SR) [Concomitant]
  14. AMOXICILLIN (AMOXIL) [Concomitant]
  15. DEXLANSOPRAZOLE (DEXILANT) [Concomitant]
  16. ONETOUCH ULTRA TEST STRIPS TEST STRIP [Concomitant]
  17. PRAVASTATIN (PRAVACHOL) [Concomitant]
  18. HYDRALAZINE (APRESOLINE) [Concomitant]
  19. ZOLOFT [Concomitant]
     Active Substance: SERTRALINE HYDROCHLORIDE

REACTIONS (7)
  - International normalised ratio abnormal [None]
  - Subdural haematoma [None]
  - Intracranial pressure increased [None]
  - White blood cell count increased [None]
  - Anaemia [None]
  - Haemorrhage intracranial [None]
  - Drug interaction [None]

NARRATIVE: CASE EVENT DATE: 20140819
